FAERS Safety Report 7488122-2 (Version None)
Quarter: 2011Q2

REPORT INFORMATION
  Report Type: 
  Country: None (occurrence: None)
  Receive Date: 20110518
  Receipt Date: 20110510
  Transmission Date: 20111010
  Serious: Yes (Hospitalization)
  Sender: FDA-Public Use
  Company Number: CO-ROCHE-776140

PATIENT
  Sex: Female

DRUGS (1)
  1. CELLCEPT [Suspect]
     Dosage: FREQUENCY REPORTED AS QD
     Route: 048
     Dates: start: 20110330

REACTIONS (2)
  - TRANSPLANT REJECTION [None]
  - PULMONARY OEDEMA [None]
